FAERS Safety Report 18443734 (Version 5)
Quarter: 2021Q2

REPORT INFORMATION
  Report Type: Report from Study
  Country: None (occurrence: US)
  Receive Date: 20201030
  Receipt Date: 20210504
  Transmission Date: 20210717
  Serious: Yes (Other)
  Sender: FDA-Public Use
  Company Number: US-ABBVIE-20K-163-3367199-00

PATIENT
  Age: 66 Year
  Sex: Female
  Weight: 61.29 kg

DRUGS (16)
  1. HUMIRA [Suspect]
     Active Substance: ADALIMUMAB
     Dosage: CITRATE FREE
     Route: 058
     Dates: start: 2018
  2. LOMOTIL [Concomitant]
     Active Substance: ATROPINE SULFATE\DIPHENOXYLATE HYDROCHLORIDE
     Indication: CROHN^S DISEASE
     Dosage: 2.5?0.025MG
  3. TRAZODONE [Concomitant]
     Active Substance: TRAZODONE HYDROCHLORIDE
     Indication: FIBROMYALGIA
  4. GLYCOPYRROLATE. [Concomitant]
     Active Substance: GLYCOPYRROLATE
     Indication: CROHN^S DISEASE
  5. LOSARTAN. [Concomitant]
     Active Substance: LOSARTAN
     Indication: HYPERTENSION
  6. NEURONTIN [Concomitant]
     Active Substance: GABAPENTIN
     Indication: FIBROMYALGIA
  7. HUMIRA [Suspect]
     Active Substance: ADALIMUMAB
     Indication: CROHN^S DISEASE
     Dosage: CITRATE FREE
     Route: 058
     Dates: start: 2016
  8. HUMIRA [Suspect]
     Active Substance: ADALIMUMAB
     Dosage: CITRATE FREE
     Route: 058
  9. PENTASA [Concomitant]
     Active Substance: MESALAMINE
     Indication: CROHN^S DISEASE
  10. RITALIN [Concomitant]
     Active Substance: METHYLPHENIDATE HYDROCHLORIDE
     Indication: ATTENTION DEFICIT HYPERACTIVITY DISORDER
  11. COVID?19 VACCINE NOS. [Concomitant]
     Active Substance: COVID-19 VACCINE NOS
     Indication: COVID-19 IMMUNISATION
     Dosage: PFIZER
     Route: 030
     Dates: start: 20210125, end: 20210125
  12. BUDESONIDE. [Concomitant]
     Active Substance: BUDESONIDE
     Indication: CROHN^S DISEASE
  13. XIIDRA [Concomitant]
     Active Substance: LIFITEGRAST
     Indication: DRY EYE
  14. COVID?19 VACCINE NOS. [Concomitant]
     Active Substance: COVID-19 VACCINE NOS
     Dosage: PFIZER
     Route: 030
     Dates: start: 20210213, end: 20210213
  15. CELEBREX [Concomitant]
     Active Substance: CELECOXIB
     Indication: FIBROMYALGIA
  16. EXELON [Concomitant]
     Active Substance: RIVASTIGMINE TARTRATE
     Indication: FIBROMYALGIA

REACTIONS (43)
  - Hypotension [Recovered/Resolved]
  - Dizziness [Recovered/Resolved]
  - Dysphagia [Unknown]
  - Drug ineffective [Recovered/Resolved]
  - Colitis ulcerative [Unknown]
  - Attention deficit hyperactivity disorder [Not Recovered/Not Resolved]
  - Arthropathy [Unknown]
  - Abdominal distension [Recovering/Resolving]
  - Diverticulitis [Not Recovered/Not Resolved]
  - Gastritis [Recovering/Resolving]
  - Feeling abnormal [Unknown]
  - Ear discomfort [Unknown]
  - Vomiting [Recovered/Resolved]
  - Irritable bowel syndrome [Recovering/Resolving]
  - Hypophagia [Recovered/Resolved]
  - Incorrect dose administered [Unknown]
  - Fibromyalgia [Not Recovered/Not Resolved]
  - Superior mesenteric artery syndrome [Recovered/Resolved]
  - Gastrointestinal inflammation [Recovering/Resolving]
  - Protein total decreased [Recovering/Resolving]
  - Scar [Unknown]
  - Vertigo [Recovered/Resolved]
  - Gastrooesophageal reflux disease [Recovering/Resolving]
  - Nausea [Recovered/Resolved]
  - Weight decreased [Recovered/Resolved]
  - Seasonal allergy [Unknown]
  - Food allergy [Unknown]
  - Oesophagitis [Recovering/Resolving]
  - Diarrhoea [Recovering/Resolving]
  - Diplopia [Unknown]
  - Nausea [Unknown]
  - Drug ineffective [Recovering/Resolving]
  - Abdominal pain [Recovered/Resolved]
  - Biliary obstruction [Recovered/Resolved]
  - Hip arthroplasty [Unknown]
  - Arthralgia [Recovered/Resolved]
  - Lactose intolerance [Not Recovered/Not Resolved]
  - Stress [Recovered/Resolved]
  - Colitis [Recovering/Resolving]
  - Renal pain [Recovered/Resolved]
  - Abdominal rigidity [Recovering/Resolving]
  - Crohn^s disease [Not Recovered/Not Resolved]
  - Procedural pain [Unknown]

NARRATIVE: CASE EVENT DATE: 2016
